FAERS Safety Report 25575526 (Version 2)
Quarter: 2025Q3

REPORT INFORMATION
  Report Type: Other
  Country: EU (occurrence: EU)
  Receive Date: 20250718
  Receipt Date: 20250725
  Transmission Date: 20251021
  Serious: Yes (Death, Other)
  Sender: Steriscience PTE
  Company Number: EU-SUN PHARMACEUTICAL INDUSTRIES LTD-2025R1-515131

PATIENT
  Age: 66 Year
  Sex: Female

DRUGS (7)
  1. ERTAPENEM SODIUM [Suspect]
     Active Substance: ERTAPENEM SODIUM
     Indication: Prophylaxis
     Route: 065
  2. MEROPENEM [Suspect]
     Active Substance: MEROPENEM
     Indication: Prophylaxis
     Route: 065
  3. DOXYCYCLINE [Suspect]
     Active Substance: DOXYCYCLINE
     Indication: Ureaplasma infection
     Route: 065
  4. SULFAMETHOXAZOLE AND TRIMETHOPRIM [Concomitant]
     Active Substance: SULFAMETHOXAZOLE\TRIMETHOPRIM
     Indication: Prophylaxis
     Route: 065
  5. VANCOMYCIN [Concomitant]
     Active Substance: VANCOMYCIN
     Indication: Prophylaxis
     Route: 065
  6. METRONIDAZOLE [Concomitant]
     Active Substance: METRONIDAZOLE
     Indication: Prophylaxis
     Route: 065
  7. DAPTOMYCIN [Concomitant]
     Active Substance: DAPTOMYCIN
     Indication: Prophylaxis
     Route: 065

REACTIONS (1)
  - Infection [Fatal]
